FAERS Safety Report 8234652-5 (Version None)
Quarter: 2012Q1

REPORT INFORMATION
  Report Type: 
  Country: None (occurrence: None)
  Receive Date: 20120326
  Receipt Date: 20120316
  Transmission Date: 20120608
  Serious: Yes (Death, Hospitalization)
  Sender: FDA-Public Use
  Company Number: FR-PFIZER INC-2012073236

PATIENT
  Age: 42 Year
  Sex: Male

DRUGS (11)
  1. ISENTRESS [Suspect]
     Dosage: 400 MG, 2X/DAY
     Route: 048
     Dates: start: 20120210
  2. FUZEON [Suspect]
     Dosage: UNK
     Route: 058
     Dates: start: 20120210
  3. MEDROL [Concomitant]
     Dosage: UNK
     Dates: start: 20120210
  4. VALGANCICLOVIR [Suspect]
     Dosage: 500 MG EVERY 3 DAYS
     Route: 042
     Dates: end: 20120215
  5. RIFABUTIN [Suspect]
     Dosage: 150 MG/DAY
     Route: 048
  6. BACTRIM [Suspect]
     Dosage: 1 AMPULE, 1X/DAY
     Route: 042
     Dates: end: 20120215
  7. ETRAVIRINE [Suspect]
     Dosage: UNK
     Route: 048
     Dates: start: 20120210
  8. ETHAMBUTOL HYDROCHLORIDE [Suspect]
     Dosage: 1200 MG, UNK
     Route: 042
  9. AZITHROMYCIN DIHYDRATE [Suspect]
     Dosage: 500 MG, 1X/DAY
     Route: 048
  10. EPIVIR [Suspect]
     Dosage: 15 ML, 2X/DAY
     Route: 048
     Dates: start: 20120210
  11. RETROVIR [Suspect]
     Dosage: 300 MG, 2X/DAY
     Route: 042
     Dates: start: 20120210, end: 20120214

REACTIONS (3)
  - NEUTROPENIA [None]
  - LEUKOPENIA [None]
  - PANCYTOPENIA [None]
